FAERS Safety Report 5267431-1 (Version None)
Quarter: 2007Q1

REPORT INFORMATION
  Report Type: 
  Country: None (occurrence: None)
  Receive Date: 20070316
  Receipt Date: 20070308
  Transmission Date: 20070707
  Serious: Yes (Other)
  Sender: FDA-Public Use
  Company Number: DE-ROCHE-479070

PATIENT
  Age: 57 Year
  Sex: Female
  Weight: 73 kg

DRUGS (9)
  1. BONVIVA [Suspect]
     Indication: OSTEOPOROSIS
     Route: 048
     Dates: start: 20061125, end: 20061215
  2. FOSAVANCE [Concomitant]
     Route: 048
     Dates: start: 20070111
  3. FOSAMAX [Concomitant]
     Dates: end: 20061125
  4. CONCOR [Concomitant]
     Indication: HYPERTENSION
     Dosage: REPORTED AS CONCOR 10. DOSING REGIMEN REPORTED AS 1X1/2.
     Route: 048
     Dates: start: 20030515
  5. TORSEMIDE [Concomitant]
     Indication: HYPERTENSION
     Dosage: REPORTED AS TORASEMIDE 10. DOSING REGIMEN REPORTED AS 2X1/2.
     Route: 048
     Dates: start: 20040415
  6. OMEPRAZOLE [Concomitant]
     Indication: GASTRITIS
     Dosage: REPORTED AS OMEPRAZOL 20. DOSING REGIMEN REPORTED AS 1X1.
     Route: 048
  7. PANTOZOL [Concomitant]
     Indication: GASTRITIS
     Dosage: SWITCHED TO OMEPRAZOL ON AN UNSPECIFIED DATE.
  8. CORIFEO [Concomitant]
     Indication: HYPERTENSION
     Dosage: REPORTED AS CORIFEO 10. DOSING REGIMEN REPORTED AS 1X1/2.
     Route: 048
     Dates: start: 20061115
  9. AROMATASE INHIBITOR [Concomitant]
     Indication: BREAST CANCER
     Dates: start: 20051215

REACTIONS (2)
  - OVERDOSE [None]
  - POLYMYALGIA RHEUMATICA [None]
